FAERS Safety Report 5814636-4 (Version None)
Quarter: 2008Q3

REPORT INFORMATION
  Report Type: 
  Country: None (occurrence: None)
  Receive Date: 20080718
  Receipt Date: 20071106
  Transmission Date: 20090109
  Serious: No
  Sender: FDA-Public Use
  Company Number: US-KINGPHARMUSA00001-K200701438

PATIENT

DRUGS (3)
  1. LEVOXYL [Suspect]
     Indication: HYPOTHYROIDISM
     Dosage: 50 MCG (1/2 100 MCG TABLET) QD
     Route: 048
     Dates: start: 20070301
  2. AMBIEN [Concomitant]
     Indication: INSOMNIA
     Dosage: UNK, PRN
     Route: 048
  3. ELAVIL [Concomitant]
     Indication: CYSTITIS
     Route: 048

REACTIONS (4)
  - CHEST PAIN [None]
  - DYSPNOEA [None]
  - HYPERSENSITIVITY [None]
  - SWELLING [None]
